FAERS Safety Report 8920864 (Version 2)
Quarter: 2012Q4

REPORT INFORMATION
  Report Type: 
  Country: US (occurrence: US)
  Receive Date: 20121121
  Receipt Date: 20121206
  Transmission Date: 20130627
  Serious: Yes (Death)
  Sender: FDA-Public Use
  Company Number: US-CELGENEUS-163-21880-12112627

PATIENT
  Age: 64 Year
  Sex: Male

DRUGS (6)
  1. REVLIMID [Suspect]
     Indication: MULTIPLE MYELOMA
     Dosage: 20 Milligram
     Route: 048
     Dates: start: 200811
  2. REVLIMID [Suspect]
     Dosage: 20 Milligram
     Route: 048
     Dates: start: 200909
  3. REVLIMID [Suspect]
     Dosage: 20 Milligram
     Route: 048
     Dates: start: 201003
  4. REVLIMID [Suspect]
     Dosage: 20 Milligram
     Route: 048
     Dates: start: 201104
  5. REVLIMID [Suspect]
     Dosage: 20 Milligram
     Route: 048
     Dates: start: 201203
  6. VELCADE [Concomitant]
     Indication: DRUG USE FOR UNKNOWN INDICATION
     Route: 065
     Dates: start: 20121009

REACTIONS (1)
  - Plasma cell myeloma [Fatal]
